FAERS Safety Report 10228341 (Version 1)
Quarter: 2014Q2

REPORT INFORMATION
  Report Type: Spontaneous
  Country: ES (occurrence: ES)
  Receive Date: 20140610
  Receipt Date: 20140610
  Transmission Date: 20141212
  Serious: Yes (Hospitalization)
  Sender: FDA-Public Use
  Company Number: ES-OTSUKA-EU-2014-10206

PATIENT
  Age: 88 Year
  Sex: Male

DRUGS (2)
  1. PLETAL [Suspect]
     Indication: ISCHAEMIA
     Dosage: 100 MG MILLIGRAM(S), BID
     Route: 065
     Dates: start: 201404
  2. OMEPRAZOLE [Suspect]
     Indication: PRODUCT USED FOR UNKNOWN INDICATION
     Dosage: UNK UNK, UNKNOWN
     Route: 048

REACTIONS (3)
  - Tachyarrhythmia [Not Recovered/Not Resolved]
  - Drug interaction [Unknown]
  - Off label use [Unknown]
